FAERS Safety Report 15291619 (Version 4)
Quarter: 2019Q1

REPORT INFORMATION
  Report Type: Report from Study
  Country: GB (occurrence: GB)
  Receive Date: 20180817
  Receipt Date: 20190123
  Transmission Date: 20190417
  Serious: Yes (Hospitalization, Other)
  Sender: FDA-Public Use
  Company Number: PHHY2018GB073539

PATIENT
  Age: 50 Year
  Sex: Female

DRUGS (3)
  1. ERELZI [Suspect]
     Active Substance: ETANERCEPT-SZZS
     Indication: SPONDYLOARTHROPATHY
  2. ERELZI [Suspect]
     Active Substance: ETANERCEPT-SZZS
     Indication: SPINAL OSTEOARTHRITIS
     Dosage: 50 MG, (PRE-FILLED AUTOINJECTOR PEN), EVERY 10 DAYS
     Route: 058
     Dates: start: 20180803
  3. ERELZI [Suspect]
     Active Substance: ETANERCEPT-SZZS
     Indication: ARTHRITIS
     Dosage: 50 MG, (PRE-FILLED AUTOINJECTOR PEN), EVERY 10 DAYS
     Route: 058

REACTIONS (7)
  - Angina pectoris [Unknown]
  - Diarrhoea [Unknown]
  - Malaise [Unknown]
  - Incorrect dose administered [Unknown]
  - Inappropriate schedule of product administration [Unknown]
  - Sarcoma [Unknown]
  - Full blood count abnormal [Unknown]

NARRATIVE: CASE EVENT DATE: 20180810
